FAERS Safety Report 6443222-0 (Version None)
Quarter: 2009Q4

REPORT INFORMATION
  Report Type: 
  Country: None (occurrence: None)
  Receive Date: 20091117
  Receipt Date: 20091110
  Transmission Date: 20100525
  Serious: Yes (Other)
  Sender: FDA-Public Use
  Company Number: US-AMGEN-US349562

PATIENT
  Sex: Female
  Weight: 114.4 kg

DRUGS (9)
  1. NPLATE [Suspect]
     Indication: IDIOPATHIC THROMBOCYTOPENIC PURPURA
     Dates: start: 20081110, end: 20090128
  2. NPLATE [Suspect]
     Route: 058
     Dates: start: 20081110, end: 20081117
  3. NPLATE [Suspect]
     Route: 058
     Dates: start: 20081118, end: 20081203
  4. NPLATE [Suspect]
     Route: 058
     Dates: start: 20081231, end: 20090128
  5. FOLIC ACID [Concomitant]
     Route: 048
  6. L-THYROXIN [Concomitant]
  7. ATENOLOL [Concomitant]
     Route: 048
  8. LISINOPRIL AND HYDROCHLOROTHIAZIDE [Concomitant]
  9. FOSAMAX [Concomitant]

REACTIONS (3)
  - BIOPSY BONE MARROW ABNORMAL [None]
  - CHRONIC MYELOMONOCYTIC LEUKAEMIA [None]
  - LEUKOCYTOSIS [None]
